FAERS Safety Report 8184395-1 (Version None)
Quarter: 2012Q1

REPORT INFORMATION
  Report Type: 
  Country: None (occurrence: None)
  Receive Date: 20120305
  Receipt Date: 20120220
  Transmission Date: 20120608
  Serious: Yes (Other)
  Sender: FDA-Public Use
  Company Number: JP-MYLANLABS-2012S1004657

PATIENT
  Sex: Male

DRUGS (12)
  1. MELPHALAN HYDROCHLORIDE [Suspect]
     Indication: BONE MARROW CONDITIONING REGIMEN
  2. VINCRISTINE [Concomitant]
  3. CYCLOSPORINE [Concomitant]
  4. CLADRIBINE [Concomitant]
  5. DOXORUBICIN HCL [Concomitant]
  6. CYCLOPHOSPHAMIDE [Concomitant]
  7. ETOPOSIDE [Suspect]
     Indication: BONE MARROW CONDITIONING REGIMEN
  8. TACROLIMUS [Suspect]
     Indication: PROPHYLAXIS AGAINST GRAFT VERSUS HOST DISEASE
  9. CYTARABINE [Concomitant]
  10. FLUDARABINE PHOSPHATE [Suspect]
     Indication: BONE MARROW CONDITIONING REGIMEN
  11. PREDNISONE TAB [Concomitant]
  12. METHOTREXATE [Concomitant]

REACTIONS (3)
  - RESPIRATORY DISORDER [None]
  - FEBRILE NEUTROPENIA [None]
  - RENAL FAILURE [None]
